FAERS Safety Report 8479756-7 (Version None)
Quarter: 2012Q2

REPORT INFORMATION
  Report Type: 
  Country: None (occurrence: None)
  Receive Date: 20120620
  Receipt Date: 20120608
  Transmission Date: 20120825
  Serious: Yes (Hospitalization)
  Sender: FDA-Public Use
  Company Number: DSA_55290_2012

PATIENT
  Age: 38 Year
  Sex: Female

DRUGS (2)
  1. FLAGYL [Suspect]
     Indication: CLOSTRIDIUM DIFFICILE COLITIS
     Dosage: (500 MG TID ORAL)
     Route: 048
     Dates: start: 20120113
  2. AUGMENTIN '125' [Concomitant]

REACTIONS (3)
  - LEUKOPENIA [None]
  - VOMITING [None]
  - NEUTROPENIA [None]
